FAERS Safety Report 8838703 (Version 1)
Quarter: 2012Q4

REPORT INFORMATION
  Report Type: 
  Country: US (occurrence: US)
  Receive Date: 20121012
  Receipt Date: 20121012
  Transmission Date: 20130627
  Serious: No
  Sender: FDA-Public Use
  Company Number: US-ASTRAZENECA-2011SE55488

PATIENT
  Age: 51 Year
  Sex: Female

DRUGS (7)
  1. PRILOSEC [Suspect]
     Route: 048
  2. NEXIUM [Suspect]
     Route: 048
  3. ACIPHEX [Concomitant]
  4. ZEGERID [Concomitant]
  5. PREVACID [Concomitant]
  6. PROTONIX [Concomitant]
  7. DEXILANT [Concomitant]

REACTIONS (4)
  - Pulmonary hypertension [Unknown]
  - Barrett^s oesophagus [Unknown]
  - Scleroderma [Unknown]
  - Drug ineffective [Unknown]
